FAERS Safety Report 26056498 (Version 2)
Quarter: 2025Q4

REPORT INFORMATION
  Report Type: Spontaneous
  Country: EU (occurrence: US)
  Receive Date: 20251118
  Receipt Date: 20251205
  Transmission Date: 20260117
  Serious: No
  Sender: VELOXIS PHARMACEUTICALS
  Company Number: EU-CHIESI-2025CHF08029

PATIENT
  Age: 7 Month
  Sex: Male

DRUGS (14)
  1. TACROLIMUS [Suspect]
     Active Substance: TACROLIMUS
     Indication: Pancreas islet cell transplant
     Dosage: UNK
     Route: 065
  2. TACROLIMUS [Suspect]
     Active Substance: TACROLIMUS
     Indication: Liver transplant
  3. TACROLIMUS [Suspect]
     Active Substance: TACROLIMUS
     Indication: Immunosuppression
  4. TACROLIMUS [Suspect]
     Active Substance: TACROLIMUS
     Indication: Off label use
  5. LAPINE T-LYMPHOCYTE IMMUNE GLOBULIN [Concomitant]
     Active Substance: LAPINE T-LYMPHOCYTE IMMUNE GLOBULIN
     Indication: Liver transplant
     Dosage: UNK
  6. LAPINE T-LYMPHOCYTE IMMUNE GLOBULIN [Concomitant]
     Active Substance: LAPINE T-LYMPHOCYTE IMMUNE GLOBULIN
     Indication: Pancreas islet cell transplant
  7. MYCOPHENOLATE MOFETIL [Concomitant]
     Active Substance: MYCOPHENOLATE MOFETIL
     Indication: Liver transplant
     Dosage: UNK
  8. MYCOPHENOLATE MOFETIL [Concomitant]
     Active Substance: MYCOPHENOLATE MOFETIL
     Indication: Pancreas islet cell transplant
  9. ETANERCEPT [Concomitant]
     Active Substance: ETANERCEPT
     Indication: Liver transplant
     Dosage: UNK
  10. ETANERCEPT [Concomitant]
     Active Substance: ETANERCEPT
     Indication: Pancreas islet cell transplant
  11. ANAKINRA [Concomitant]
     Active Substance: ANAKINRA
     Indication: Liver transplant
     Dosage: UNK
  12. ANAKINRA [Concomitant]
     Active Substance: ANAKINRA
     Indication: Pancreas islet cell transplant
  13. CORTICOSTEROID NOS [Concomitant]
     Active Substance: CORTICOSTEROID NOS
     Indication: Liver transplant
     Dosage: UNK
  14. CORTICOSTEROID NOS [Concomitant]
     Active Substance: CORTICOSTEROID NOS
     Indication: Pancreas islet cell transplant

REACTIONS (2)
  - Off label use [Unknown]
  - Off label use [Unknown]
